FAERS Safety Report 7904637-4 (Version None)
Quarter: 2011Q4

REPORT INFORMATION
  Report Type: 
  Country: None (occurrence: None)
  Receive Date: 20111109
  Receipt Date: 20111102
  Transmission Date: 20120403
  Serious: Yes (Hospitalization)
  Sender: FDA-Public Use
  Company Number: US-GLAXOSMITHKLINE-A0947977A

PATIENT
  Age: 42 Year
  Sex: Female

DRUGS (2)
  1. IMITREX [Suspect]
     Indication: MIGRAINE
     Dosage: 100MG AS REQUIRED
     Route: 048
     Dates: start: 20070630
  2. UNKNOWN ANTIBIOTIC [Suspect]
     Indication: PRODUCT USED FOR UNKNOWN INDICATION
     Route: 065

REACTIONS (12)
  - HEMIPLEGIA [None]
  - PNEUMOTHORAX [None]
  - INFARCTION [None]
  - DYSPNOEA [None]
  - FATIGUE [None]
  - NAUSEA [None]
  - MIGRAINE [None]
  - PERFORMANCE STATUS DECREASED [None]
  - DRUG INEFFECTIVE [None]
  - INJURY [None]
  - CEREBROVASCULAR ACCIDENT [None]
  - BRONCHOSPASM [None]
